FAERS Safety Report 5109854-7 (Version None)
Quarter: 2006Q3

REPORT INFORMATION
  Report Type: 
  Country: None (occurrence: None)
  Receive Date: 20060918
  Receipt Date: 20060918
  Transmission Date: 20061208
  Serious: Yes (Other)
  Sender: FDA-Public Use
  Company Number: None

PATIENT
  Age: 63 Year
  Sex: Male
  Weight: 108.4097 kg

DRUGS (4)
  1. LISINOPRIL [Suspect]
     Indication: CARDIAC DISORDER
     Dosage: ONE TABLET   TWICE DAILY  ORALLY
     Route: 048
     Dates: start: 20030101, end: 20060701
  2. NARDIL [Concomitant]
  3. CARDIZEM [Concomitant]
  4. NITRO [Concomitant]

REACTIONS (4)
  - ANGINA PECTORIS [None]
  - HEADACHE [None]
  - HYPOAESTHESIA [None]
  - PAIN IN EXTREMITY [None]
